FAERS Safety Report 5961945-4 (Version None)
Quarter: 2008Q4

REPORT INFORMATION
  Report Type: 
  Country: None (occurrence: None)
  Receive Date: 20081121
  Receipt Date: 20081106
  Transmission Date: 20090506
  Serious: Yes (Other)
  Sender: FDA-Public Use
  Company Number: PHHY2008BR27559

PATIENT
  Age: 74 Year
  Sex: Female

DRUGS (3)
  1. DIOVAN HCT [Suspect]
     Indication: HYPERTENSION
     Dosage: 80/12.5MG 1 TABLET IN THE MORNING
     Route: 048
     Dates: start: 19980101
  2. DIOVAN [Suspect]
     Indication: HYPERTENSION
     Dosage: 80MG 1 TABLET AT NIGHT
     Route: 048
     Dates: start: 19980101
  3. TAMARINE [Concomitant]

REACTIONS (3)
  - DIPLOPIA [None]
  - MYASTHENIA GRAVIS [None]
  - VISION BLURRED [None]
